FAERS Safety Report 6218025-2 (Version None)
Quarter: 2009Q2

REPORT INFORMATION
  Report Type: 
  Country: None (occurrence: None)
  Receive Date: 20090604
  Receipt Date: 20090604
  Transmission Date: 20091009
  Serious: Yes (Other)
  Sender: FDA-Public Use
  Company Number: None

PATIENT
  Age: 49 Year
  Sex: Female

DRUGS (4)
  1. TRIPLE ANTIBIOTIC OINTMENT VARIOUS [Suspect]
     Indication: ARTHROPOD BITE
     Dosage: THIN LAYER TOP
     Route: 061
     Dates: start: 20090524, end: 20090526
  2. TRIPLE ANTIBIOTIC OINTMENT VARIOUS [Suspect]
     Indication: PROMOTION OF WOUND HEALING
     Dosage: THIN LAYER TOP
     Route: 061
     Dates: start: 20090524, end: 20090526
  3. TRIPLE ANTIBIOTIC OINTMENT VARIOUS [Suspect]
     Indication: ARTHROPOD BITE
     Dosage: THIN LAYER TOP
     Route: 061
     Dates: start: 20090530, end: 20090531
  4. TRIPLE ANTIBIOTIC OINTMENT VARIOUS [Suspect]
     Indication: PROMOTION OF WOUND HEALING
     Dosage: THIN LAYER TOP
     Route: 061
     Dates: start: 20090530, end: 20090531

REACTIONS (4)
  - BLOOD BLISTER [None]
  - DRUG HYPERSENSITIVITY [None]
  - INCISION SITE HAEMORRHAGE [None]
  - WOUND SECRETION [None]
